FAERS Safety Report 25835593 (Version 1)
Quarter: 2025Q3

REPORT INFORMATION
  Report Type: Spontaneous
  Country: US (occurrence: US)
  Receive Date: 20250923
  Receipt Date: 20250923
  Transmission Date: 20251021
  Serious: No
  Sender: ALCON
  Company Number: US-ALCON LABORATORIES-ALC2025US004300

PATIENT
  Sex: Male

DRUGS (1)
  1. ACOLTREMON [Suspect]
     Active Substance: ACOLTREMON
     Indication: Product used for unknown indication
     Route: 047
     Dates: end: 20250804

REACTIONS (5)
  - Dyspnoea [Unknown]
  - Dizziness [Unknown]
  - Anxiety [Unknown]
  - Sinus headache [Unknown]
  - Irritability [Unknown]

NARRATIVE: CASE EVENT DATE: 20250803
